FAERS Safety Report 9702215 (Version 3)
Quarter: 2013Q4

REPORT INFORMATION
  Report Type: Report from Study
  Country: IN (occurrence: IN)
  Receive Date: 20131121
  Receipt Date: 20131221
  Transmission Date: 20140711
  Serious: Yes (Hospitalization)
  Sender: FDA-Public Use
  Company Number: PHHY2013IN133401

PATIENT
  Age: 70 Year
  Sex: Female

DRUGS (2)
  1. ACLASTA [Suspect]
     Indication: OSTEOPOROSIS
     Dosage: 5MG/100ML PER YEAR
     Route: 042
     Dates: start: 20121121
  2. ACLASTA [Suspect]
     Dosage: 5MG/100ML PER YEAR
     Route: 042
     Dates: start: 20131108

REACTIONS (2)
  - Fall [Unknown]
  - Upper limb fracture [Recovering/Resolving]
